FAERS Safety Report 4430914-8 (Version None)
Quarter: 2004Q3

REPORT INFORMATION
  Report Type: 
  Country: None (occurrence: None)
  Receive Date: 20040823
  Receipt Date: 20040816
  Transmission Date: 20050211
  Serious: Yes (Hospitalization)
  Sender: FDA-Public Use
  Company Number: PHNU2004DE02891

PATIENT
  Age: 53 Year
  Sex: Female

DRUGS (4)
  1. TRILEPTAL [Suspect]
     Indication: EPILEPSY
     Dosage: 600 MG, BID
     Route: 048
     Dates: start: 20040501
  2. KEPPRA [Concomitant]
  3. EUTHYROX [Concomitant]
  4. OXYCODONE HCL [Concomitant]
     Dosage: UNK, UNK

REACTIONS (4)
  - APLASTIC ANAEMIA [None]
  - FEBRILE NEUTROPENIA [None]
  - INFECTION [None]
  - PANCYTOPENIA [None]
